FAERS Safety Report 5958489-2 (Version None)
Quarter: 2008Q4

REPORT INFORMATION
  Report Type: 
  Country: None (occurrence: None)
  Receive Date: 20081119
  Receipt Date: 20081112
  Transmission Date: 20090506
  Serious: Yes (Life-Threatening, Other)
  Sender: FDA-Public Use
  Company Number: DK-ABBOTT-08P-044-0474069-00

PATIENT
  Sex: Female

DRUGS (1)
  1. HUMIRA [Suspect]
     Indication: RHEUMATOID ARTHRITIS
     Route: 058
     Dates: start: 20070413

REACTIONS (5)
  - DELIRIUM [None]
  - ENCEPHALITIS HERPES [None]
  - ILL-DEFINED DISORDER [None]
  - MEMORY IMPAIRMENT [None]
  - PSYCHOTIC DISORDER [None]
